FAERS Safety Report 22685529 (Version 2)
Quarter: 2023Q4

REPORT INFORMATION
  Report Type: Report from Study
  Country: US (occurrence: US)
  Receive Date: 20230710
  Receipt Date: 20231107
  Transmission Date: 20240109
  Serious: Yes (Hospitalization, Other)
  Sender: FDA-Public Use
  Company Number: US-ABBVIE-5319500

PATIENT
  Sex: Female

DRUGS (5)
  1. SKYRIZI [Suspect]
     Active Substance: RISANKIZUMAB-RZAA
     Indication: Crohn^s disease
     Dosage: STRENGTH: 360MG/2.4M??EVERY 8 WEEKS STARTING AT WEEK 12
     Route: 058
     Dates: start: 202307
  2. SKYRIZI [Suspect]
     Active Substance: RISANKIZUMAB-RZAA
     Route: 058
  3. SKYRIZI [Suspect]
     Active Substance: RISANKIZUMAB-RZAA
     Indication: Crohn^s disease
     Dosage: WEEK 0
     Route: 042
     Dates: start: 202304, end: 202304
  4. SKYRIZI [Suspect]
     Active Substance: RISANKIZUMAB-RZAA
     Indication: Crohn^s disease
     Dosage: WEEK 4
     Route: 042
     Dates: start: 202305, end: 202305
  5. SKYRIZI [Suspect]
     Active Substance: RISANKIZUMAB-RZAA
     Indication: Crohn^s disease
     Dosage: WEEK 8
     Route: 042
     Dates: start: 20230609, end: 20230609

REACTIONS (13)
  - Intestinal obstruction [Unknown]
  - Arthralgia [Not Recovered/Not Resolved]
  - Night sweats [Unknown]
  - Myalgia [Recovering/Resolving]
  - Gastrointestinal stenosis [Unknown]
  - Diarrhoea [Not Recovered/Not Resolved]
  - Iron deficiency anaemia [Unknown]
  - Insomnia [Not Recovered/Not Resolved]
  - Upper-airway cough syndrome [Unknown]
  - Flatulence [Not Recovered/Not Resolved]
  - Drug ineffective [Unknown]
  - Antinuclear antibody increased [Unknown]
  - Joint swelling [Recovering/Resolving]

NARRATIVE: CASE EVENT DATE: 20230101
